FAERS Safety Report 14761488 (Version 1)
Quarter: 2018Q2

REPORT INFORMATION
  Report Type: Spontaneous
  Country: GB (occurrence: GB)
  Receive Date: 20180415
  Receipt Date: 20180415
  Transmission Date: 20180711
  Serious: Yes (Other)
  Sender: FDA-Public Use
  Company Number: GB-TEVA-2018-GB-881449

PATIENT
  Age: 47 Year
  Sex: Male
  Weight: 82 kg

DRUGS (6)
  1. NICOTINE. [Concomitant]
     Active Substance: NICOTINE
     Dosage: 1 CARTRIDGE
     Dates: start: 20170913, end: 20170913
  2. PARACETAMOL [Concomitant]
     Active Substance: ACETAMINOPHEN
     Dosage: 1-2 TABLET
     Dates: start: 20171030, end: 20171030
  3. MIRTAZAPINE. [Suspect]
     Active Substance: MIRTAZAPINE
     Route: 065
     Dates: start: 20170929
  4. IBUPROFEN. [Concomitant]
     Active Substance: IBUPROFEN
     Dosage: 1-2 TABLET
     Dates: start: 20171030, end: 20171030
  5. GABAPENTIN. [Concomitant]
     Active Substance: GABAPENTIN
     Dosage: 3 DOSAGE FORMS DAILY;
     Dates: start: 20171109
  6. OTOMIZE [Concomitant]
     Active Substance: DEXAMETHASONE\NEOMYCIN SULFATE
     Dosage: 6 DOSAGE FORMS DAILY;
     Dates: start: 20171026, end: 20171102

REACTIONS (1)
  - White blood cell count decreased [Unknown]

NARRATIVE: CASE EVENT DATE: 20171127
